FAERS Safety Report 18199736 (Version 4)
Quarter: 2024Q4

REPORT INFORMATION
  Report Type: Spontaneous
  Country: US (occurrence: US)
  Receive Date: 20200826
  Receipt Date: 20241112
  Transmission Date: 20250115
  Serious: Yes (Hospitalization, Disabling)
  Sender: BIOMARIN
  Company Number: US-BIOMARINAP-US-2020-131568

PATIENT

DRUGS (3)
  1. ALDURAZYME [Suspect]
     Active Substance: LARONIDASE
     Indication: Mucopolysaccharidosis I
     Dosage: 58 MG, QW
     Route: 042
     Dates: start: 20180914
  2. ALDURAZYME [Suspect]
     Active Substance: LARONIDASE
     Dosage: 45 MG, QW
     Route: 042
     Dates: start: 20201017
  3. ALDURAZYME [Suspect]
     Active Substance: LARONIDASE
     Dosage: 46.4 (UNITS NOT PROVIDED) QW
     Route: 042

REACTIONS (9)
  - Walking aid user [Not Recovered/Not Resolved]
  - Spinal operation [Unknown]
  - Migraine [Unknown]
  - Pain [Recovering/Resolving]
  - Back pain [Unknown]
  - Incontinence [Unknown]
  - Anxiety [Unknown]
  - Oxygen therapy [Not Recovered/Not Resolved]
  - Fatigue [Recovering/Resolving]

NARRATIVE: CASE EVENT DATE: 20220501
